FAERS Safety Report 6062715-1 (Version None)
Quarter: 2009Q1

REPORT INFORMATION
  Report Type: 
  Country: None (occurrence: None)
  Receive Date: 20090203
  Receipt Date: 20090121
  Transmission Date: 20090719
  Serious: Yes (Other)
  Sender: FDA-Public Use
  Company Number: IE-ELI_LILLY_AND_COMPANY-IE200901003880

PATIENT
  Age: 15 Year
  Sex: Male

DRUGS (2)
  1. STRATTERA [Suspect]
     Dosage: UNK, UNKNOWN
     Route: 065
  2. STRATTERA [Suspect]
     Dosage: 60 MG, DAILY (1/D)
     Route: 065

REACTIONS (1)
  - WOUND [None]
